FAERS Safety Report 5352212-0 (Version None)
Quarter: 2007Q2

REPORT INFORMATION
  Report Type: 
  Country: None (occurrence: None)
  Receive Date: 20070606
  Receipt Date: 20070525
  Transmission Date: 20071010
  Serious: Yes (Hospitalization)
  Sender: FDA-Public Use
  Company Number: 2007S1000145

PATIENT
  Age: 49 Year
  Sex: Male

DRUGS (3)
  1. SORIATANE [Suspect]
     Indication: DRUG USE FOR UNKNOWN INDICATION
     Dosage: ; PO
     Route: 048
  2. ETRETINATE (ETRETINATE) [Suspect]
     Indication: PSORIASIS
     Dosage: ; PO
     Route: 048
  3. VITAMIN D2 [Concomitant]

REACTIONS (1)
  - DERMATITIS EXFOLIATIVE [None]
